FAERS Safety Report 25512037 (Version 6)
Quarter: 2025Q3

REPORT INFORMATION
  Report Type: Spontaneous
  Country: US (occurrence: US)
  Receive Date: 20250703
  Receipt Date: 20250914
  Transmission Date: 20251020
  Serious: Yes (Disabling, Other)
  Sender: AMGEN
  Company Number: US-AMGEN-USASP2025127516

PATIENT
  Age: 42 Year
  Sex: Female
  Weight: 53 kg

DRUGS (47)
  1. TEPEZZA [Suspect]
     Active Substance: TEPROTUMUMAB-TRBW
     Indication: Endocrine ophthalmopathy
     Dosage: 552 MILLIGRAM, Q3WK
     Route: 040
     Dates: start: 20200625, end: 20200625
  2. TEPEZZA [Suspect]
     Active Substance: TEPROTUMUMAB-TRBW
     Indication: Graves^ disease
     Dosage: 1000 MILLIGRAM, Q3WK
     Route: 040
     Dates: start: 20200717, end: 20200717
  3. TEPEZZA [Suspect]
     Active Substance: TEPROTUMUMAB-TRBW
     Dosage: 1000 MILLIGRAM, Q3WK
     Route: 040
     Dates: start: 20200807, end: 20200807
  4. TEPEZZA [Suspect]
     Active Substance: TEPROTUMUMAB-TRBW
     Dosage: 1000 MILLIGRAM, Q3WK
     Route: 040
     Dates: start: 20200828, end: 20200828
  5. TEPEZZA [Suspect]
     Active Substance: TEPROTUMUMAB-TRBW
     Dosage: 1000 MILLIGRAM, Q3WK
     Route: 040
     Dates: start: 20200921, end: 20200921
  6. TEPEZZA [Suspect]
     Active Substance: TEPROTUMUMAB-TRBW
     Dosage: 1000 MILLIGRAM, Q3WK
     Route: 040
     Dates: start: 20201012, end: 20201012
  7. TEPEZZA [Suspect]
     Active Substance: TEPROTUMUMAB-TRBW
     Dosage: 1000 MILLIGRAM, Q3WK
     Route: 040
     Dates: start: 20201123, end: 20201123
  8. TEPEZZA [Suspect]
     Active Substance: TEPROTUMUMAB-TRBW
     Dosage: 1000 MILLIGRAM, Q3WK
     Route: 040
  9. TEPEZZA [Suspect]
     Active Substance: TEPROTUMUMAB-TRBW
     Dosage: 585 MILLIGRAM, Q3WK (SECOND COURSE)
     Route: 040
     Dates: start: 20210818, end: 20210818
  10. TEPEZZA [Suspect]
     Active Substance: TEPROTUMUMAB-TRBW
     Dosage: 1170 MILLIGRAM, Q3WK
     Route: 040
     Dates: start: 20210909, end: 20210909
  11. TEPEZZA [Suspect]
     Active Substance: TEPROTUMUMAB-TRBW
     Dosage: 1170 MILLIGRAM, Q3WK
     Route: 040
     Dates: start: 20210930, end: 20210930
  12. TEPEZZA [Suspect]
     Active Substance: TEPROTUMUMAB-TRBW
     Dosage: 1170 MILLIGRAM, Q3WK
     Route: 040
     Dates: start: 20211101, end: 20211101
  13. TEPEZZA [Suspect]
     Active Substance: TEPROTUMUMAB-TRBW
     Dosage: 1170 MILLIGRAM, Q3WK
     Route: 040
     Dates: start: 20211112, end: 20211112
  14. TEPEZZA [Suspect]
     Active Substance: TEPROTUMUMAB-TRBW
     Dosage: 1170 MILLIGRAM, Q3WK
     Route: 040
     Dates: start: 20211213, end: 20211213
  15. TEPEZZA [Suspect]
     Active Substance: TEPROTUMUMAB-TRBW
     Dosage: 1170 MILLIGRAM, Q3WK
     Route: 040
     Dates: start: 20220214, end: 20220214
  16. ARMOUR THYROID [Concomitant]
     Active Substance: THYROID, PORCINE
     Dosage: 60 MILLIGRAM, QD
     Route: 048
     Dates: start: 20230926
  17. MODERNA COVID-19 VACCINE [Concomitant]
     Active Substance: ELASOMERAN
     Route: 030
     Dates: start: 20210427
  18. MODERNA COVID-19 VACCINE [Concomitant]
     Active Substance: ELASOMERAN
     Route: 030
     Dates: start: 20210525
  19. RESTASIS [Concomitant]
     Active Substance: CYCLOSPORINE
     Route: 065
  20. TRUSOPT [Concomitant]
     Active Substance: DORZOLAMIDE HYDROCHLORIDE
     Dosage: 1 DROP, BID (2 % OPHTHALMIC SOLUTION)
     Route: 047
  21. IODINE [Concomitant]
     Active Substance: IODINE
     Route: 048
  22. KELP [Concomitant]
     Active Substance: KELP
     Route: 048
  23. LYSINE [Concomitant]
     Active Substance: LYSINE
     Route: 048
  24. VITAMINS [Concomitant]
     Active Substance: VITAMINS
     Route: 048
  25. OMEGA-3 FATTY ACIDS [Concomitant]
     Active Substance: OMEGA-3 FATTY ACIDS
     Route: 048
  26. RESTASIS [Concomitant]
     Active Substance: CYCLOSPORINE
     Route: 065
     Dates: start: 20211001
  27. SODIUM CHLORIDE [Concomitant]
     Active Substance: SODIUM CHLORIDE
     Route: 065
  28. Tear drops [Concomitant]
     Route: 065
  29. METHIMAZOLE [Concomitant]
     Active Substance: METHIMAZOLE
     Route: 065
  30. PROPYLTHIOURACIL [Concomitant]
     Active Substance: PROPYLTHIOURACIL
     Route: 065
  31. LEVOTHYROXINE [Concomitant]
     Active Substance: LEVOTHYROXINE
     Dosage: 25 MICROGRAM, QD
     Route: 065
  32. CYTOMEL [Concomitant]
     Active Substance: LIOTHYRONINE SODIUM
     Dosage: 5 MICROGRAM, QD
     Route: 065
  33. AZOPT [Concomitant]
     Active Substance: BRINZOLAMIDE
     Dosage: 1 DROP, TID
     Route: 047
  34. CALCIUM [Concomitant]
     Active Substance: CALCIUM
  35. VITAMIN C [Concomitant]
     Active Substance: ASCORBIC ACID
     Route: 065
  36. PSYLLIUM [Concomitant]
     Active Substance: PLANTAGO SEED
     Route: 065
  37. BIFIDOBACTERIUM BIFIDUM [Concomitant]
     Active Substance: BIFIDOBACTERIUM BIFIDUM
     Dosage: UNK UNK, BID
     Route: 048
  38. FLONASE [Concomitant]
     Active Substance: FLUTICASONE PROPIONATE
     Dosage: UNK UNK, QD (50 MCG/ACT) (1 SPARY)
     Route: 045
  39. MAGNESIUM [Concomitant]
     Active Substance: MAGNESIUM
     Route: 065
  40. ZINC [Concomitant]
     Active Substance: ZINC
     Route: 065
  41. BACITRACIN [Concomitant]
     Active Substance: BACITRACIN
     Dosage: UNK UNK, QD
     Route: 065
  42. VITAMIN D [Concomitant]
     Active Substance: VITAMIN D NOS
     Dosage: 1.25 MILLIGRAM, QWK
     Route: 048
  43. TRYPTOPHAN [Concomitant]
     Active Substance: TRYPTOPHAN
     Dosage: 500 MILLIGRAM, QD
     Route: 048
  44. SELENIUM [Concomitant]
     Active Substance: SELENIUM
     Dosage: 200 MICROGRAM, QD
     Route: 048
  45. LEVOTHYROXINE SODIUM [Concomitant]
     Active Substance: LEVOTHYROXINE SODIUM
     Dosage: 50 MICROGRAM, QD
     Route: 048
  46. DORZOLAMIDE HYDROCHLORIDE [Concomitant]
     Active Substance: DORZOLAMIDE HYDROCHLORIDE
     Dosage: 1 DROP, TID
     Route: 047
  47. XIIDRA [Concomitant]
     Active Substance: LIFITEGRAST
     Dosage: UNK UNK, BID
     Route: 065

REACTIONS (38)
  - Deafness neurosensory [Not Recovered/Not Resolved]
  - Endocrine ophthalmopathy [Unknown]
  - Graves^ disease [Unknown]
  - Physical disability [Unknown]
  - Exophthalmos [Unknown]
  - Drug dependence [Unknown]
  - Injury [Unknown]
  - Pain [Unknown]
  - Anxiety [Unknown]
  - Impaired quality of life [Unknown]
  - Emotional distress [Unknown]
  - Discomfort [Unknown]
  - Product communication issue [Unknown]
  - Myalgia [Unknown]
  - Neck pain [Not Recovered/Not Resolved]
  - Haematocrit decreased [Unknown]
  - Anti-thyroid antibody positive [Unknown]
  - Dizziness [Unknown]
  - Sinus congestion [Unknown]
  - Thyroid mass [Unknown]
  - Breast tenderness [Unknown]
  - Arthralgia [Unknown]
  - Chronic sinusitis [Unknown]
  - Intervertebral disc degeneration [Unknown]
  - Carbon dioxide decreased [Unknown]
  - Post procedural hypothyroidism [Unknown]
  - Palpitations [Unknown]
  - Balance disorder [Unknown]
  - Visual impairment [Unknown]
  - Off label use [Unknown]
  - Ear pain [Unknown]
  - Ear discomfort [Unknown]
  - Glycosylated haemoglobin increased [Unknown]
  - Muscle spasms [Unknown]
  - Blood glucose increased [Unknown]
  - Eustachian tube disorder [Unknown]
  - Diarrhoea [Unknown]
  - Fatigue [Unknown]

NARRATIVE: CASE EVENT DATE: 20200101
